FAERS Safety Report 4893772-3 (Version None)
Quarter: 2006Q1

REPORT INFORMATION
  Report Type: 
  Country: None (occurrence: None)
  Receive Date: 20060124
  Receipt Date: 20060110
  Transmission Date: 20060701
  Serious: Yes (Other)
  Sender: FDA-Public Use
  Company Number: 2005P1000620

PATIENT
  Age: 66 Year
  Sex: Female

DRUGS (2)
  1. RETEPLASE (RETEPLASE) [Suspect]
     Indication: ACUTE MYOCARDIAL INFARCTION
     Dosage: IV
     Route: 042
  2. ABCIXIMAB (ABCIXIMAB) [Suspect]
     Indication: ACUTE MYOCARDIAL INFARCTION
     Dosage: IV
     Route: 042

REACTIONS (4)
  - HAEMOGLOBIN DECREASED [None]
  - HYPERTENSIVE CRISIS [None]
  - HYPOVOLAEMIC SHOCK [None]
  - OXYGEN SATURATION DECREASED [None]
